FAERS Safety Report 18288718 (Version 1)
Quarter: 2020Q3

REPORT INFORMATION
  Report Type: Spontaneous
  Country: US (occurrence: US)
  Receive Date: 20200918
  Receipt Date: 20200918
  Transmission Date: 20201103
  Serious: Yes (Life-Threatening)
  Sender: FDA-Public Use
  Company Number: None

PATIENT
  Age: 59 Year
  Sex: Male

DRUGS (1)
  1. METHOTREXATE 25MG/ML VIAL VIAL 25MG/ML [Suspect]
     Active Substance: METHOTREXATE
     Indication: RHEUMATOID ARTHRITIS
     Dosage: ?          OTHER FREQUENCY:OTHER;?
     Route: 058
     Dates: start: 202005, end: 202006

REACTIONS (1)
  - White blood cell count decreased [None]

NARRATIVE: CASE EVENT DATE: 20200601
